FAERS Safety Report 7525289-1 (Version None)
Quarter: 2011Q2

REPORT INFORMATION
  Report Type: 
  Country: None (occurrence: None)
  Receive Date: 20110526
  Receipt Date: 20110512
  Transmission Date: 20111010
  Serious: Yes (Hospitalization)
  Sender: FDA-Public Use
  Company Number: DSU-2011-03466

PATIENT
  Age: 73 Year
  Sex: Female

DRUGS (5)
  1. EZETIMIBE [Concomitant]
  2. ASPIRIN [Concomitant]
  3. CRESTOR [Concomitant]
  4. COLESEVELAM HYDROCHLORIDE [Suspect]
     Indication: DYSLIPIDAEMIA
     Dosage: 1250 MG (1250 MG, QD, ) PER ORAL
     Route: 048
     Dates: start: 20110109
  5. TREDAPTIVE (NICOTINIC ACID, LAROPIPRANT) [Suspect]
     Indication: DYSLIPIDAEMIA
     Dosage: 1000 MG (1000 MG, QD, PER ORAL
     Route: 048
     Dates: start: 20110109

REACTIONS (6)
  - FLUSHING [None]
  - CONDITION AGGRAVATED [None]
  - SMALL INTESTINAL PERFORATION [None]
  - ACUTE ABDOMEN [None]
  - ABDOMINAL DISCOMFORT [None]
  - TREATMENT NONCOMPLIANCE [None]
